FAERS Safety Report 7809095-6 (Version None)
Quarter: 2011Q4

REPORT INFORMATION
  Report Type: 
  Country: None (occurrence: None)
  Receive Date: 20111012
  Receipt Date: 20110426
  Transmission Date: 20120403
  Serious: Yes (Other)
  Sender: FDA-Public Use
  Company Number: GB-UCBSA-025340

PATIENT
  Sex: Male

DRUGS (5)
  1. ACETAMINOPHEN [Suspect]
     Indication: ARTHRALGIA
     Dosage: APPROXIMATELY 3 GRAM PER DAY
     Route: 064
  2. ERYTHROMYCIN [Suspect]
     Indication: RESPIRATORY TRACT INFECTION
     Route: 064
  3. AMOXICILLIN [Suspect]
     Indication: LOWER RESPIRATORY TRACT INFECTION
  4. AMOXICILLIN [Suspect]
     Indication: URINARY TRACT INFECTION
  5. ACETAMINOPHEN AND CODEINE PHOSPHATE [Suspect]
     Indication: ARTHRALGIA
     Route: 064

REACTIONS (2)
  - GENERAL PHYSICAL CONDITION ABNORMAL [None]
  - MATERNAL EXPOSURE DURING PREGNANCY [None]
